FAERS Safety Report 10571572 (Version 3)
Quarter: 2014Q4

REPORT INFORMATION
  Report Type: Spontaneous
  Country: US (occurrence: US)
  Receive Date: 20141107
  Receipt Date: 20141220
  Transmission Date: 20150529
  Serious: Yes (Other)
  Sender: FDA-Public Use
  Company Number: US-009507513-1410USA011234

PATIENT
  Age: 47 Year
  Sex: Female
  Weight: 63.95 kg

DRUGS (24)
  1. XELODA [Concomitant]
     Active Substance: CAPECITABINE
     Dosage: TWO (150 MG), BID; 14 DAYS ON, 7 DAYS OFF
     Route: 048
     Dates: start: 20130801, end: 2013
  2. LEVAQUIN [Concomitant]
     Active Substance: LEVOFLOXACIN
     Dosage: 500 MG, QD
     Route: 048
     Dates: start: 20131223
  3. PRAVASTATIN SODIUM. [Concomitant]
     Active Substance: PRAVASTATIN SODIUM
     Dosage: UNK
     Route: 048
     Dates: start: 20120707
  4. CORTICOSTEROIDS (UNSPECIFIED) [Concomitant]
     Active Substance: UNSPECIFIED INGREDIENT
     Route: 042
  5. EMLA [Concomitant]
     Active Substance: LIDOCAINE\PRILOCAINE
     Dosage: APPLY TO PORT SITE 1 HR BEFORE ACCESS, PRN
     Dates: start: 20120629
  6. XELODA [Concomitant]
     Active Substance: CAPECITABINE
     Dosage: 3 TABS (500MG) BID, 14 DAYS ON 7 DAYS OFF
     Route: 048
     Dates: start: 20131014
  7. PROCHLORPERAZINE MALEATE. [Concomitant]
     Active Substance: PROCHLORPERAZINE MALEATE
     Dosage: 10 MG (1), Q4H, PRN
     Route: 048
     Dates: start: 20120621
  8. EMEND [Suspect]
     Active Substance: APREPITANT
     Indication: PROPHYLAXIS OF NAUSEA AND VOMITING
     Dosage: 125 MG/ AN HOUR BEFORE CHEMOTHERAPY AS NEEDED # 1,5 TIMES, 125 MG QD, DAY 1
     Route: 048
     Dates: start: 20140616, end: 20140616
  9. EMEND [Suspect]
     Active Substance: APREPITANT
     Dosage: STRENGTH: 80 MG, AS DIRECTED (80 MG QD, DAY 2)
     Dates: start: 20140617, end: 20140617
  10. DECADRON [Concomitant]
     Active Substance: DEXAMETHASONE
     Dosage: UNK
  11. CELLCEPT [Concomitant]
     Active Substance: MYCOPHENOLATE MOFETIL\MYCOPHENOLATE MOFETIL HYDROCHLORIDE
     Dosage: UNK
     Route: 048
     Dates: start: 20120707
  12. ALUMINUM HYDROXIDE (+) MAGNESIUM HYDROXIDE (+) SIMETHICONE [Concomitant]
  13. ASPIRIN. [Concomitant]
     Active Substance: ASPIRIN
     Dosage: UNK
     Dates: start: 20120707
  14. GEMZAR [Concomitant]
     Active Substance: GEMCITABINE HYDROCHLORIDE
  15. MULTI-VITAMIN [Concomitant]
     Active Substance: .ALPHA.-TOCOPHEROL ACETATE, DL-\ASCORBIC ACID\CYANOCOBALAMIN\FLUORIDE ION\FOLIC ACID\NIACIN\PYRIDOXINE\RIBOFLAVIN\THIAMINE\VITAMIN A\VITAMIN D
     Dosage: UNK
     Route: 048
     Dates: start: 20120707
  16. EMEND [Suspect]
     Active Substance: APREPITANT
     Dosage: STRENGTH: 80 MG, AS DIRECTED (80 MG QD, DAY 3)
     Dates: start: 20140618
  17. MAG OXIDE [Concomitant]
     Dosage: UNK
     Route: 048
     Dates: start: 20120707
  18. PROGRAF [Concomitant]
     Active Substance: TACROLIMUS\TACROLIMUS ANHYDROUS
     Dosage: UNK
     Dates: start: 20120707
  19. MAGNESIUM OXIDE. [Concomitant]
     Active Substance: MAGNESIUM OXIDE
     Dosage: UNK
     Route: 048
     Dates: start: 20140212
  20. TRANSDERM SCOP [Concomitant]
     Active Substance: SCOPOLAMINE
     Dosage: 1 PATCH EVERY 3 DAYS AS DIRECTED
     Route: 062
     Dates: start: 20131014
  21. NYSTATIN. [Concomitant]
     Active Substance: NYSTATIN
     Dosage: 100000 UNIT/ML; 5 ML SWISH AND SWALLOW, PRN
     Route: 048
  22. ANTINEOPLASTIC (UNSPECIFIED) [Concomitant]
     Active Substance: UNSPECIFIED INGREDIENT
  23. ONDANSETRON [Concomitant]
     Active Substance: ONDANSETRON
     Dosage: UNK
     Route: 048
     Dates: start: 20120707
  24. ONDANSETRON HYDROCHLORIDE. [Concomitant]
     Active Substance: ONDANSETRON HYDROCHLORIDE
     Indication: NAUSEA
     Dosage: 1 (8MG) Q 12 HOURS PRN
     Route: 048
     Dates: start: 20130117

REACTIONS (9)
  - Drug effect decreased [Recovered/Resolved]
  - Local swelling [Unknown]
  - Inappropriate schedule of drug administration [Unknown]
  - Hepatic cancer [Recovering/Resolving]
  - Lung disorder [Unknown]
  - Flushing [Recovering/Resolving]
  - VIIth nerve paralysis [Unknown]
  - Blood creatinine increased [Unknown]
  - Alopecia [Unknown]

NARRATIVE: CASE EVENT DATE: 2014
